FAERS Safety Report 6566097-8 (Version None)
Quarter: 2010Q1

REPORT INFORMATION
  Report Type: 
  Country: None (occurrence: None)
  Receive Date: 20100202
  Receipt Date: 20100118
  Transmission Date: 20100710
  Serious: No
  Sender: FDA-Public Use
  Company Number: US-JNJFOC-20100107989

PATIENT
  Sex: Female
  Weight: 99.79 kg

DRUGS (6)
  1. SANDOZ FENTANYL TRANSDERMAL SYSTEM [Suspect]
     Indication: PAIN
     Route: 062
  2. GABAPENTIN [Concomitant]
     Indication: NEURALGIA
     Route: 048
  3. BUSPIRONE HCL [Concomitant]
     Indication: ANXIETY
     Route: 048
  4. BUSPIRONE HCL [Concomitant]
     Indication: DEPRESSION
     Route: 048
  5. ALPRAZOLAM [Concomitant]
     Indication: ANXIETY
     Route: 048
  6. MAGNESIUM OXIDE [Concomitant]
     Indication: MUSCLE SPASMS
     Route: 048

REACTIONS (4)
  - ACCIDENTAL EXPOSURE [None]
  - DEVICE LEAKAGE [None]
  - MUSCLE SPASMS [None]
  - WRONG TECHNIQUE IN DRUG USAGE PROCESS [None]
